FAERS Safety Report 10202510 (Version 1)
Quarter: 2014Q2

REPORT INFORMATION
  Report Type: Report from Study
  Country: US (occurrence: US)
  Receive Date: 20140528
  Receipt Date: 20140528
  Transmission Date: 20141212
  Serious: Yes (Hospitalization)
  Sender: FDA-Public Use
  Company Number: US-ABBVIE-14P-163-1239080-00

PATIENT
  Sex: Female
  Weight: 49.94 kg

DRUGS (4)
  1. HUMIRA [Suspect]
     Indication: CROHN^S DISEASE
     Route: 058
     Dates: start: 201309
  2. HUMIRA [Suspect]
     Route: 058
     Dates: start: 201308, end: 201308
  3. HUMIRA [Suspect]
     Route: 058
     Dates: start: 201308, end: 201308
  4. APRISO [Concomitant]
     Indication: CROHN^S DISEASE

REACTIONS (6)
  - Haematochezia [Recovering/Resolving]
  - Faecal incontinence [Recovering/Resolving]
  - White blood cell count increased [Unknown]
  - Crohn^s disease [Recovering/Resolving]
  - Clostridium test positive [Unknown]
  - Inappropriate schedule of drug administration [Not Recovered/Not Resolved]
